FAERS Safety Report 7383345-5 (Version None)
Quarter: 2011Q1

REPORT INFORMATION
  Report Type: 
  Country: None (occurrence: None)
  Receive Date: 20110325
  Receipt Date: 20110325
  Transmission Date: 20110831
  Serious: Yes (Hospitalization)
  Sender: FDA-Public Use
  Company Number: None

PATIENT
  Age: 86 Year
  Sex: Female
  Weight: 68.1 kg

DRUGS (20)
  1. ATENOLOL [Concomitant]
  2. ISOSORBIDE DINITRATE [Concomitant]
  3. PANTOPRAZOLE [Concomitant]
  4. METRONIDZAOLE [Concomitant]
  5. ASPIRIN [Suspect]
     Indication: CORONARY ARTERY DISEASE
     Dosage: 81MG DAILY PO CHRONIC
     Route: 048
  6. ZETIA [Concomitant]
  7. ITCHY EYE [Concomitant]
  8. CELEBREX [Suspect]
  9. AMLODIPINE [Concomitant]
  10. ACETAMINOPHEN [Concomitant]
  11. CA + D [Concomitant]
  12. M.V.I. [Concomitant]
  13. PLAVIX [Suspect]
     Indication: CORONARY ARTERY DISEASE
     Dosage: 75MG DAILY PO CHRONIC
     Route: 048
  14. NIASPAN [Concomitant]
  15. NITROGLYCERIN [Concomitant]
  16. ACTOS [Concomitant]
  17. LEVOXYL [Concomitant]
  18. OPTIVA [Concomitant]
  19. CRESTOR [Concomitant]
  20. FIBERCON [Concomitant]

REACTIONS (2)
  - GASTRIC ULCER HAEMORRHAGE [None]
  - HAEMOGLOBIN DECREASED [None]
